FAERS Safety Report 7399727-1 (Version None)
Quarter: 2011Q2

REPORT INFORMATION
  Report Type: 
  Country: None (occurrence: None)
  Receive Date: 20110407
  Receipt Date: 20110330
  Transmission Date: 20111010
  Serious: Yes (Death)
  Sender: FDA-Public Use
  Company Number: CN-ROCHE-768478

PATIENT
  Sex: Male

DRUGS (3)
  1. MYCOPHENOLATE MOFETIL [Suspect]
     Indication: LUNG TRANSPLANT
     Dosage: REPORTED DOSING LEVEL:2 DOSE FORM TWICE A DAY
     Route: 048
     Dates: start: 20091121
  2. PREDNISONE [Concomitant]
     Indication: LUNG TRANSPLANT
     Dates: start: 20091121
  3. TACROLIMUS [Concomitant]
     Indication: LUNG TRANSPLANT
     Dates: start: 20091121

REACTIONS (1)
  - DEATH [None]
